FAERS Safety Report 18660669 (Version 7)
Quarter: 2021Q2

REPORT INFORMATION
  Report Type: Report from Study
  Country: US (occurrence: US)
  Receive Date: 20201224
  Receipt Date: 20210524
  Transmission Date: 20210717
  Serious: Yes (Hospitalization)
  Sender: FDA-Public Use
  Company Number: US-TAKEDA-2020TUS059085

PATIENT
  Age: 52 Year
  Sex: Female

DRUGS (20)
  1. TEDUGLUTIDE [Suspect]
     Active Substance: TEDUGLUTIDE
     Indication: ILEOSTOMY
     Dosage: 2.175 MILLIGRAM, QD
     Route: 058
     Dates: start: 20201117, end: 20201201
  2. TEDUGLUTIDE [Suspect]
     Active Substance: TEDUGLUTIDE
     Indication: ILEOSTOMY
     Dosage: 2.175 MILLIGRAM, QD
     Route: 058
     Dates: start: 20201117, end: 20201201
  3. TEDUGLUTIDE [Suspect]
     Active Substance: TEDUGLUTIDE
     Dosage: 2.175 MILLIGRAM, QD
     Route: 058
     Dates: start: 20201117
  4. TEDUGLUTIDE [Suspect]
     Active Substance: TEDUGLUTIDE
     Dosage: 2.175 MILLIGRAM, QD
     Route: 058
     Dates: start: 20201117
  5. TEDUGLUTIDE [Suspect]
     Active Substance: TEDUGLUTIDE
     Dosage: 1.102 MILLIGRAM, QD
     Route: 058
     Dates: start: 20201117
  6. TEDUGLUTIDE [Suspect]
     Active Substance: TEDUGLUTIDE
     Indication: ILEOSTOMY
     Dosage: 2.175 MILLIGRAM, QD
     Route: 058
     Dates: start: 20201117, end: 20201201
  7. TEDUGLUTIDE [Suspect]
     Active Substance: TEDUGLUTIDE
     Indication: SHORT-BOWEL SYNDROME
     Dosage: 1.103 MILLIGRAM, QD
     Route: 058
     Dates: start: 20201116
  8. TEDUGLUTIDE [Suspect]
     Active Substance: TEDUGLUTIDE
     Dosage: 1.103 MILLIGRAM, QD
     Route: 058
     Dates: start: 202011
  9. TEDUGLUTIDE [Suspect]
     Active Substance: TEDUGLUTIDE
     Dosage: 1.103 MILLIGRAM, QD
     Route: 058
     Dates: start: 202011
  10. TEDUGLUTIDE [Suspect]
     Active Substance: TEDUGLUTIDE
     Indication: ILEOSTOMY
     Dosage: 2.175 MILLIGRAM, QD
     Route: 058
     Dates: start: 20201117, end: 20201201
  11. TEDUGLUTIDE [Suspect]
     Active Substance: TEDUGLUTIDE
     Dosage: 2.175 MILLIGRAM, QD
     Route: 058
     Dates: start: 20201117
  12. TEDUGLUTIDE [Suspect]
     Active Substance: TEDUGLUTIDE
     Dosage: 1.102 MILLIGRAM, QD
     Route: 058
     Dates: start: 20201117
  13. TEDUGLUTIDE [Suspect]
     Active Substance: TEDUGLUTIDE
     Indication: SHORT-BOWEL SYNDROME
     Dosage: 1.103 MILLIGRAM, QD
     Route: 058
     Dates: start: 20201116
  14. TEDUGLUTIDE [Suspect]
     Active Substance: TEDUGLUTIDE
     Indication: SHORT-BOWEL SYNDROME
     Dosage: 1.103 MILLIGRAM, QD
     Route: 058
     Dates: start: 20201116
  15. TEDUGLUTIDE [Suspect]
     Active Substance: TEDUGLUTIDE
     Dosage: 1.103 MILLIGRAM, QD
     Route: 058
     Dates: start: 202011
  16. TEDUGLUTIDE [Suspect]
     Active Substance: TEDUGLUTIDE
     Indication: SHORT-BOWEL SYNDROME
     Dosage: 1.103 MILLIGRAM, QD
     Route: 058
     Dates: start: 20201116
  17. TEDUGLUTIDE [Suspect]
     Active Substance: TEDUGLUTIDE
     Dosage: 2.175 MILLIGRAM, QD
     Route: 058
     Dates: start: 20201117
  18. TEDUGLUTIDE [Suspect]
     Active Substance: TEDUGLUTIDE
     Dosage: 1.102 MILLIGRAM, QD
     Route: 058
     Dates: start: 20201117
  19. TEDUGLUTIDE [Suspect]
     Active Substance: TEDUGLUTIDE
     Dosage: 1.102 MILLIGRAM, QD
     Route: 058
     Dates: start: 20201117
  20. TEDUGLUTIDE [Suspect]
     Active Substance: TEDUGLUTIDE
     Dosage: 1.103 MILLIGRAM, QD
     Route: 058
     Dates: start: 202011

REACTIONS (7)
  - Constipation [Unknown]
  - Pyrexia [Unknown]
  - Weight increased [Unknown]
  - Drug ineffective [Unknown]
  - Nausea [Unknown]
  - Stoma complication [Unknown]
  - Hospitalisation [Unknown]

NARRATIVE: CASE EVENT DATE: 20201201
